FAERS Safety Report 7349163-9 (Version None)
Quarter: 2011Q1

REPORT INFORMATION
  Report Type: 
  Country: None (occurrence: None)
  Receive Date: 20110304
  Receipt Date: 20110222
  Transmission Date: 20110831
  Serious: Yes (Hospitalization)
  Sender: FDA-Public Use
  Company Number: LEO-2011-00172

PATIENT
  Age: 24 Year
  Sex: Male

DRUGS (6)
  1. FLOXACILLIN SODIUM [Concomitant]
  2. VANCOMYCIN [Concomitant]
  3. WARFARIN (WARFARIN) [Concomitant]
  4. GEMTAMICIN (GENTAMICIN) [Concomitant]
  5. BENZYLPENICILLIN (BENZYLPENICILIN) [Concomitant]
  6. INNOHEP [Suspect]
     Indication: DEEP VEIN THROMBOSIS
     Dosage: 175 IU/KG (175 IU/KG, 1 IN 1 D), SUBCUTANEOUS
     Route: 058

REACTIONS (14)
  - SEPTIC EMBOLUS [None]
  - DRUG SCREEN POSITIVE [None]
  - BLOOD CREATININE INCREASED [None]
  - INTERNATIONAL NORMALISED RATIO INCREASED [None]
  - BLOOD SODIUM DECREASED [None]
  - TRICUSPID VALVE INCOMPETENCE [None]
  - STREPTOCOCCAL INFECTION [None]
  - SPLENOMEGALY [None]
  - CARDIOMEGALY [None]
  - WHITE BLOOD CELL COUNT DECREASED [None]
  - PLATELET COUNT DECREASED [None]
  - SINUS TACHYCARDIA [None]
  - PROTHROMBIN TIME PROLONGED [None]
  - BLOOD POTASSIUM DECREASED [None]
